FAERS Safety Report 20810822 (Version 1)
Quarter: 2022Q2

REPORT INFORMATION
  Report Type: Spontaneous
  Country: US (occurrence: None)
  Receive Date: 20220510
  Receipt Date: 20220510
  Transmission Date: 20220721
  Serious: Yes (Hospitalization)
  Sender: FDA-Public Use
  Company Number: US-ROCHE-3094096

PATIENT
  Sex: Male

DRUGS (1)
  1. ESBRIET [Suspect]
     Active Substance: PIRFENIDONE
     Indication: Product used for unknown indication
     Dosage: TAKE 1 TABLET 3 TIMES A DAY FOR 7 DAYS, THEN TAKE 2 TABLETS 3 TIMES A DAY FOR 7 DAYS, THEN TAKE 3 TA
     Route: 048
     Dates: start: 20220422

REACTIONS (1)
  - Pneumonia [Unknown]
